FAERS Safety Report 14985291 (Version 1)
Quarter: 2018Q2

REPORT INFORMATION
  Report Type: Spontaneous
  Country: US (occurrence: US)
  Receive Date: 20180518
  Receipt Date: 20180518
  Transmission Date: 20180711
  Serious: Yes (Other)
  Sender: FDA-Public Use
  Company Number: None

PATIENT
  Age: 65 Year
  Sex: Female
  Weight: 63 kg

DRUGS (5)
  1. LEVOTHYROXINE. [Concomitant]
     Active Substance: LEVOTHYROXINE
  2. FISH OIL [Concomitant]
     Active Substance: FISH OIL
  3. SEPTOCAINE AND EPINEPHRINE [Suspect]
     Active Substance: ARTICAINE HYDROCHLORIDE\EPINEPHRINE BITARTRATE
     Indication: DENTAL LOCAL ANAESTHESIA
     Dosage: ?          OTHER ROUTE:DENTAL ANESTHESIA?
     Dates: start: 20180319, end: 20180319
  4. RHINOCORT [Concomitant]
     Active Substance: BUDESONIDE
  5. MULTIVITAMIN [Concomitant]
     Active Substance: VITAMINS

REACTIONS (14)
  - Ear pain [None]
  - Tinnitus [None]
  - Delayed recovery from anaesthesia [None]
  - Cough [None]
  - Rhinitis [None]
  - Secretion discharge [None]
  - Contraindicated product administered [None]
  - Sputum discoloured [None]
  - Oropharyngeal pain [None]
  - Dizziness [None]
  - Adverse event [None]
  - Headache [None]
  - Nerve injury [None]
  - Swelling face [None]

NARRATIVE: CASE EVENT DATE: 20180319
